FAERS Safety Report 5242040-9 (Version None)
Quarter: 2007Q1

REPORT INFORMATION
  Report Type: 
  Country: None (occurrence: None)
  Receive Date: 20070220
  Receipt Date: 20070126
  Transmission Date: 20070707
  Serious: Yes (Hospitalization, Other)
  Sender: FDA-Public Use
  Company Number: US-PFIZER INC-2006082924

PATIENT
  Sex: Male
  Weight: 99.8 kg

DRUGS (2)
  1. BEXTRA [Suspect]
     Indication: PAIN
  2. VIOXX [Suspect]
     Indication: TESTICULAR PAIN

REACTIONS (1)
  - MYOCARDIAL INFARCTION [None]
